FAERS Safety Report 15656493 (Version 1)
Quarter: 2018Q4

REPORT INFORMATION
  Report Type: Spontaneous
  Country: GB (occurrence: GB)
  Receive Date: 20181126
  Receipt Date: 20181126
  Transmission Date: 20190205
  Serious: Yes (Other)
  Sender: FDA-Public Use
  Company Number: GB-PFIZER INC-2018477348

PATIENT
  Age: 37 Year
  Sex: Female
  Weight: 55 kg

DRUGS (3)
  1. SAYANA PRESS [Suspect]
     Active Substance: MEDROXYPROGESTERONE\MEDROXYPROGESTERONE ACETATE
     Dosage: 1 DF, UNK (INJECTION SITE RIGHT FRONT UPPER THIGH)
     Route: 058
     Dates: start: 20180409, end: 20180409
  2. SAYANA PRESS [Suspect]
     Active Substance: MEDROXYPROGESTERONE\MEDROXYPROGESTERONE ACETATE
     Indication: CONTRACEPTION
     Dosage: 1 DF, UNK (NJECTION SITE ABDOMEN)
     Route: 058
     Dates: start: 20180115, end: 20180115
  3. SAYANA PRESS [Suspect]
     Active Substance: MEDROXYPROGESTERONE\MEDROXYPROGESTERONE ACETATE
     Dosage: 1 DF, UNK (INJECTION SITE OPPOSITE FRONT LEFT THIGH)
     Route: 058
     Dates: start: 20180709, end: 20180709

REACTIONS (4)
  - Injection site pain [Recovered/Resolved]
  - Injection site indentation [Not Recovered/Not Resolved]
  - Injection site atrophy [Not Recovered/Not Resolved]
  - Injection site haematoma [Recovered/Resolved with Sequelae]

NARRATIVE: CASE EVENT DATE: 20180119
